APPROVED DRUG PRODUCT: RIVAROXABAN
Active Ingredient: RIVAROXABAN
Strength: 1MG/ML
Dosage Form/Route: FOR SUSPENSION;ORAL
Application: A218195 | Product #001 | TE Code: AB
Applicant: LUPIN LTD
Approved: Sep 25, 2025 | RLD: No | RS: No | Type: RX